FAERS Safety Report 17435118 (Version 1)
Quarter: 2020Q1

REPORT INFORMATION
  Report Type: Spontaneous
  Country: CA (occurrence: CA)
  Receive Date: 20200219
  Receipt Date: 20200219
  Transmission Date: 20200409
  Serious: Yes (Hospitalization)
  Sender: FDA-Public Use
  Company Number: CA-PFIZER INC-2020058496

PATIENT
  Age: 74 Year
  Sex: Male

DRUGS (3)
  1. HYDROXYCHLOROQUINE [Suspect]
     Active Substance: HYDROXYCHLOROQUINE
     Indication: RHEUMATOID ARTHRITIS
     Dosage: UNK
  2. METHOTREXATE SODIUM. [Suspect]
     Active Substance: METHOTREXATE SODIUM
     Indication: RHEUMATOID ARTHRITIS
     Dosage: UNK
  3. PREDNISONE. [Suspect]
     Active Substance: PREDNISONE
     Indication: RHEUMATOID ARTHRITIS
     Dosage: 10 MG, 1X/DAY

REACTIONS (16)
  - Aphasia [Recovered/Resolved]
  - Parkinsonism [Recovered/Resolved]
  - Bradykinesia [Recovered/Resolved]
  - Confusional state [Recovered/Resolved]
  - Generalised tonic-clonic seizure [Recovered/Resolved]
  - Postural tremor [Recovered/Resolved]
  - Apathy [Recovered/Resolved]
  - Muscle rigidity [Recovered/Resolved]
  - Neurological symptom [Recovered/Resolved]
  - Mental status changes [Recovered/Resolved]
  - Meningitis noninfective [Recovered/Resolved]
  - Gait disturbance [Recovered/Resolved]
  - Hemiparesis [Recovered/Resolved]
  - Resting tremor [Recovered/Resolved]
  - Disease progression [Recovered/Resolved]
  - Hypoaesthesia [Recovered/Resolved]
